FAERS Safety Report 8948098 (Version 3)
Quarter: 2013Q4

REPORT INFORMATION
  Report Type: Report from Study
  Country: JP (occurrence: JP)
  Receive Date: 20121204
  Receipt Date: 20131223
  Transmission Date: 20140711
  Serious: Yes (Hospitalization)
  Sender: FDA-Public Use
  Company Number: JP-GLAXOSMITHKLINE-B0842322A

PATIENT
  Age: 10 Year
  Sex: Male
  Weight: 26.4 kg

DRUGS (22)
  1. ARRANON [Suspect]
     Indication: T-CELL TYPE ACUTE LEUKAEMIA
     Dosage: 515MG PER DAY
     Route: 042
     Dates: start: 20120904, end: 20120905
  2. ARRANON [Suspect]
     Indication: T-CELL TYPE ACUTE LEUKAEMIA
     Dosage: 515MG PER DAY
     Route: 042
     Dates: start: 20121009, end: 20121010
  3. ARRANON [Suspect]
     Indication: T-CELL TYPE ACUTE LEUKAEMIA
     Dosage: 510MG PER DAY
     Route: 042
     Dates: start: 20130219, end: 20130219
  4. ARRANON [Suspect]
     Indication: T-CELL TYPE ACUTE LEUKAEMIA
     Dosage: 500MG PER DAY
     Route: 042
     Dates: start: 20130416, end: 20130416
  5. ARRANON [Suspect]
     Indication: T-CELL TYPE ACUTE LEUKAEMIA
     Dosage: 485MG PER DAY
     Route: 042
     Dates: start: 20130625, end: 20130625
  6. ARRANON [Suspect]
     Indication: T-CELL TYPE ACUTE LEUKAEMIA
     Dosage: 480MG PER DAY
     Route: 042
     Dates: start: 20130822, end: 20130822
  7. ARRANON [Suspect]
     Indication: T-CELL TYPE ACUTE LEUKAEMIA
     Dosage: 471.6MG PER DAY
     Route: 042
     Dates: start: 20131022, end: 20131022
  8. CYLOCIDE [Suspect]
     Indication: NEOPLASM MALIGNANT
     Route: 042
     Dates: start: 20120404, end: 20120904
  9. CYLOCIDE [Suspect]
     Indication: NEOPLASM MALIGNANT
     Route: 042
     Dates: start: 20120904, end: 20121022
  10. CYLOCIDE [Suspect]
     Indication: NEOPLASM MALIGNANT
     Dates: start: 20120904, end: 20121022
  11. CYLOCIDE [Suspect]
     Dosage: 30MG PER DAY
     Dates: start: 20121025
  12. METHOTREXATE [Suspect]
     Indication: NEOPLASM MALIGNANT
     Dates: start: 20120404, end: 20120903
  13. METHOTREXATE [Suspect]
     Indication: NEOPLASM MALIGNANT
     Dosage: 12MG PER DAY
     Dates: start: 20120904, end: 20121022
  14. LEUNASE [Concomitant]
     Indication: NEOPLASM MALIGNANT
     Route: 042
     Dates: start: 20120404, end: 20120904
  15. LEUKERIN [Concomitant]
     Indication: NEOPLASM MALIGNANT
     Route: 048
     Dates: start: 20120404, end: 20120903
  16. LEUKERIN [Concomitant]
     Indication: NEOPLASM MALIGNANT
     Route: 048
     Dates: start: 20120904, end: 20121022
  17. PREDONINE [Concomitant]
     Indication: NEOPLASM MALIGNANT
     Route: 048
     Dates: start: 20120404, end: 20120903
  18. PREDONINE [Concomitant]
     Indication: NEOPLASM MALIGNANT
     Route: 048
     Dates: start: 20120904, end: 20131022
  19. ONCOVIN [Concomitant]
     Indication: NEOPLASM MALIGNANT
     Route: 042
     Dates: start: 20120404, end: 20120904
  20. BAKTAR [Concomitant]
     Indication: INFECTION PROPHYLAXIS
     Route: 048
     Dates: start: 20120904, end: 20131022
  21. MYCOSYST [Concomitant]
     Indication: INFECTION PROPHYLAXIS
     Route: 048
     Dates: start: 20120904, end: 20131022
  22. GLYCYRON [Concomitant]
     Route: 048
     Dates: start: 20120904, end: 20131022

REACTIONS (3)
  - Pancytopenia [Recovered/Resolved]
  - Vomiting [Recovered/Resolved]
  - Stomatitis [Recovered/Resolved]
